FAERS Safety Report 21799574 (Version 2)
Quarter: 2023Q1

REPORT INFORMATION
  Report Type: Spontaneous
  Country: JP (occurrence: JP)
  Receive Date: 20221230
  Receipt Date: 20230117
  Transmission Date: 20230417
  Serious: Yes (Death, Hospitalization)
  Sender: FDA-Public Use
  Company Number: JP-BAYER-2022A174369

PATIENT
  Sex: Male

DRUGS (16)
  1. VERICIGUAT HYDROCHLORIDE [Suspect]
     Active Substance: VERICIGUAT HYDROCHLORIDE
     Indication: Cardiac failure chronic
     Dosage: 2 TABLETS PER DAY, QD
     Dates: start: 20220216, end: 20221005
  2. OLODATEROL HYDROCHLORIDE\TIOTROPIUM BROMIDE MONOHYDRATE [Concomitant]
     Active Substance: OLODATEROL HYDROCHLORIDE\TIOTROPIUM BROMIDE MONOHYDRATE
     Indication: Chronic obstructive pulmonary disease
     Dosage: 2 PUFF(S), QD
     Dates: end: 20221005
  3. WARFARIN [Concomitant]
     Active Substance: WARFARIN
     Indication: Thrombosis prophylaxis
     Dosage: 1 MG, QD
     Dates: end: 20221005
  4. WARFARIN [Concomitant]
     Active Substance: WARFARIN
     Indication: Ejection fraction decreased
  5. BISOPROLOL FUMARATE [Concomitant]
     Active Substance: BISOPROLOL FUMARATE
     Indication: Hyperuricaemia
     Dosage: 1.25 MG, QD
     Dates: end: 20221005
  6. FEBUXOSTAT [Concomitant]
     Active Substance: FEBUXOSTAT
     Indication: Hyperuricaemia
     Dosage: 10 MG, QD
     Dates: end: 20221005
  7. AZOSEMIDE [Concomitant]
     Active Substance: AZOSEMIDE
     Indication: Cardiac failure chronic
     Dosage: 30 MG, QD
     Dates: end: 20221005
  8. VONOPRAZAN FUMARATE [Concomitant]
     Active Substance: VONOPRAZAN FUMARATE
     Indication: Cardiac failure chronic
     Dosage: 10 MG, QD
     Dates: end: 20221005
  9. DAPAGLIFLOZIN [Concomitant]
     Active Substance: DAPAGLIFLOZIN
     Dosage: 10 MG, QD
     Dates: end: 20221005
  10. SAMSCA [Concomitant]
     Active Substance: TOLVAPTAN
     Indication: Cardiac failure chronic
     Dosage: 15 MG, QD
     Dates: end: 20221005
  11. CARBON [Concomitant]
     Active Substance: ACTIVATED CHARCOAL
     Indication: Chronic kidney disease
     Dosage: 2G, THREE TIMES PER DAY, 2HOURS AFTER MEAL
     Dates: end: 20221005
  12. PIMOBENDAN [Concomitant]
     Active Substance: PIMOBENDAN
     Indication: Cardiac failure chronic
     Dosage: 2.5 MG, BID
     Dates: end: 20221005
  13. MAGNESIUM OXIDE [Concomitant]
     Active Substance: MAGNESIUM OXIDE
     Dosage: 330 MG, BID
     Dates: end: 20221005
  14. BILASTINE [Concomitant]
     Active Substance: BILASTINE
     Dosage: 20 MG, HS
     Dates: end: 20221005
  15. FERROUS CITRATE [Concomitant]
     Active Substance: FERROUS CITRATE
     Indication: Anaemia
     Dosage: 50 MG, QD
     Dates: end: 20221005
  16. TRAZODONE HYDROCHLORIDE [Concomitant]
     Active Substance: TRAZODONE HYDROCHLORIDE
     Dosage: 25 MG, HS
     Dates: end: 20221005

REACTIONS (3)
  - Cardiac failure congestive [Fatal]
  - Dyspnoea [Fatal]
  - Face oedema [Fatal]
